FAERS Safety Report 5795712-1 (Version None)
Quarter: 2008Q2

REPORT INFORMATION
  Report Type: 
  Country: None (occurrence: None)
  Receive Date: 20080630
  Receipt Date: 20080612
  Transmission Date: 20081010
  Serious: No
  Sender: FDA-Public Use
  Company Number: US-BOEHRINGER INGELHEIM GMBH, GERMANY-2008-BP-02976BP

PATIENT
  Sex: Female

DRUGS (8)
  1. SPIRIVA [Suspect]
     Indication: CHRONIC OBSTRUCTIVE PULMONARY DISEASE
     Route: 055
     Dates: start: 20040601
  2. SPIRIVA [Suspect]
     Indication: ASTHMA
  3. ALBUTEROL [Concomitant]
  4. AZMACORT [Concomitant]
  5. OXYGEN [Concomitant]
  6. ELAVIL [Concomitant]
  7. WATER PILLS [Concomitant]
  8. POTASSIUM PILLS [Concomitant]

REACTIONS (1)
  - DYSPNOEA [None]
